FAERS Safety Report 9293762 (Version 1)
Quarter: 2013Q2

REPORT INFORMATION
  Report Type: Spontaneous
  Country: GB (occurrence: GB)
  Receive Date: 20130516
  Receipt Date: 20130516
  Transmission Date: 20140414
  Serious: Yes (Hospitalization)
  Sender: FDA-Public Use
  Company Number: GB-EISAI INC-E2090-02567-SPO-GB

PATIENT
  Age: 2 Year
  Sex: Female
  Weight: 12 kg

DRUGS (6)
  1. ZONEGRAN [Suspect]
     Indication: PRODUCT USED FOR UNKNOWN INDICATION
     Dates: start: 201204
  2. PHENYTOIN [Concomitant]
  3. OMEPRAZOLE [Concomitant]
  4. HYOSCINE PATCH [Concomitant]
     Dates: start: 201205
  5. MOVICOL [Concomitant]
     Dosage: 2 SACHET UNKNOWN
     Dates: start: 201212
  6. SEPTRIN [Concomitant]
     Dates: start: 20120420

REACTIONS (2)
  - Urinary retention [Not Recovered/Not Resolved]
  - Off label use [Not Recovered/Not Resolved]
